FAERS Safety Report 7362681-2 (Version None)
Quarter: 2011Q1

REPORT INFORMATION
  Report Type: 
  Country: None (occurrence: None)
  Receive Date: 20110321
  Receipt Date: 20110310
  Transmission Date: 20110831
  Serious: Yes (Hospitalization, Other)
  Sender: FDA-Public Use
  Company Number: 2006BI008218

PATIENT
  Age: 56 Year
  Sex: Female
  Weight: 87 kg

DRUGS (23)
  1. ATENOLOL [Concomitant]
     Indication: HEART RATE INCREASED
  2. PRILOSEC [Concomitant]
     Indication: GASTROOESOPHAGEAL REFLUX DISEASE
  3. FOLIC ACID [Concomitant]
  4. AVONEX [Suspect]
     Indication: MULTIPLE SCLEROSIS
     Route: 030
     Dates: start: 19980101, end: 20050101
  5. TRICOR [Concomitant]
  6. FIBERCON [Concomitant]
  7. NEXIUM [Concomitant]
  8. AVONEX [Suspect]
     Route: 030
     Dates: start: 20050201, end: 20060601
  9. AVONEX [Suspect]
     Route: 030
  10. MULTIVITAMIN [Concomitant]
  11. PREDNISONE [Concomitant]
  12. ULTRAM [Concomitant]
  13. EFFEXOR [Concomitant]
     Indication: DEPRESSION
  14. HORMONE REPLACEMENT THERAPY [Concomitant]
     Indication: HORMONE REPLACEMENT THERAPY
  15. PREMARIN [Concomitant]
  16. ASPIRIN [Concomitant]
  17. AZULFIDINE [Concomitant]
  18. BEXTRA [Concomitant]
  19. METHOTREXATE [Concomitant]
     Indication: RHEUMATOID ARTHRITIS
  20. NEURONTIN [Concomitant]
  21. VITAMIN B-12 [Concomitant]
  22. SYNTHROID [Concomitant]
     Indication: HYPOTHYROIDISM
  23. IMIPRAMINE [Concomitant]

REACTIONS (6)
  - VITAMIN B12 DECREASED [None]
  - BREAST CANCER [None]
  - BLOOD TRIGLYCERIDES INCREASED [None]
  - BODY HEIGHT DECREASED [None]
  - MASTECTOMY [None]
  - NEUROPATHY PERIPHERAL [None]
